FAERS Safety Report 23925133 (Version 1)
Quarter: 2024Q2

REPORT INFORMATION
  Report Type: Spontaneous
  Country: CN (occurrence: CN)
  Receive Date: 20240531
  Receipt Date: 20240531
  Transmission Date: 20240716
  Serious: Yes (Hospitalization)
  Sender: FDA-Public Use
  Company Number: CN-PFIZER INC-PV202400071413

PATIENT
  Age: 12 Year
  Sex: Male
  Weight: 29 kg

DRUGS (3)
  1. METHOTREXATE SODIUM [Suspect]
     Active Substance: METHOTREXATE SODIUM
     Indication: Leukaemia
     Dosage: 5000 MG, SINGLE
     Route: 041
     Dates: start: 20240520, end: 20240520
  2. METHOTREXATE SODIUM [Suspect]
     Active Substance: METHOTREXATE SODIUM
     Indication: Chemotherapy
  3. SODIUM CHLORIDE [Concomitant]
     Active Substance: SODIUM CHLORIDE
     Indication: Vehicle solution use
     Dosage: 500 ML, SINGLE
     Route: 041
     Dates: start: 20240520, end: 20240520

REACTIONS (6)
  - Oedema mouth [Recovering/Resolving]
  - Swelling face [Recovering/Resolving]
  - Tongue oedema [Recovering/Resolving]
  - Mouth swelling [Recovering/Resolving]
  - Face oedema [Recovering/Resolving]
  - Swollen tongue [Recovering/Resolving]

NARRATIVE: CASE EVENT DATE: 20240522
